FAERS Safety Report 15515646 (Version 2)
Quarter: 2018Q4

REPORT INFORMATION
  Report Type: Report from Study
  Country: JP (occurrence: JP)
  Receive Date: 20181017
  Receipt Date: 20181205
  Transmission Date: 20190205
  Serious: Yes (Death, Disabling, Other)
  Sender: FDA-Public Use
  Company Number: JP-ROCHE-2197253

PATIENT
  Age: 62 Year
  Sex: Male
  Weight: 90 kg

DRUGS (1)
  1. ATEZOLIZUMAB. [Suspect]
     Active Substance: ATEZOLIZUMAB
     Indication: LUNG ADENOCARCINOMA
     Route: 041
     Dates: start: 20180629, end: 20180720

REACTIONS (7)
  - Chronic gastritis [Unknown]
  - Brain oedema [Recovering/Resolving]
  - Chest pain [Recovered/Resolved]
  - Metastases to central nervous system [Unknown]
  - Dyspepsia [Recovering/Resolving]
  - Malignant pleural effusion [Not Recovered/Not Resolved]
  - Tumour pseudoprogression [Unknown]

NARRATIVE: CASE EVENT DATE: 20180703
